FAERS Safety Report 9754500 (Version 1)
Quarter: 2013Q4

REPORT INFORMATION
  Report Type: Spontaneous
  Country: US (occurrence: US)
  Receive Date: 20131213
  Receipt Date: 20131213
  Transmission Date: 20140711
  Serious: Yes (Other)
  Sender: FDA-Public Use
  Company Number: US-UCBSA-105544

PATIENT
  Sex: Female

DRUGS (2)
  1. NEUPRO [Suspect]
     Indication: MYOCLONUS
  2. NEUPRO [Suspect]
     Indication: RESTLESS LEGS SYNDROME

REACTIONS (6)
  - Arachnoid cyst [Unknown]
  - Skin irritation [Unknown]
  - Vertigo [Unknown]
  - Dizziness [Unknown]
  - Vomiting [Unknown]
  - Abdominal discomfort [Unknown]
